FAERS Safety Report 22175641 (Version 1)
Quarter: 2023Q2

REPORT INFORMATION
  Report Type: Spontaneous
  Country: GB (occurrence: GB)
  Receive Date: 20230405
  Receipt Date: 20230405
  Transmission Date: 20230721
  Serious: Yes (Other)
  Sender: FDA-Public Use
  Company Number: None

PATIENT
  Age: 66 Year
  Sex: Female
  Weight: 125.0 kg

DRUGS (3)
  1. METHOTREXATE [Suspect]
     Active Substance: METHOTREXATE
     Indication: Product used for unknown indication
     Dosage: DOSE INCREASED TO 20 MG ONCE WEEKLY
     Route: 048
  2. CETIRIZINE [Concomitant]
     Active Substance: CETIRIZINE HYDROCHLORIDE
     Dosage: TAKE 1 TABLET DAILY FOR 7 DAYS, THEN 1 TABLET DAILY AS AND WHEN REQUIRED,10 MG
     Dates: start: 20220530
  3. FOLIC ACID [Concomitant]
     Active Substance: FOLIC ACID
     Dosage: TAKE 1 TABLET ONCE WEEKLY (TWO DAYS AFTER METHOTREXATE)
     Dates: start: 20220406

REACTIONS (5)
  - Vision blurred [Unknown]
  - Gait disturbance [Unknown]
  - Head discomfort [Unknown]
  - Pruritus [Unknown]
  - Multiple sclerosis [Unknown]
